FAERS Safety Report 10382266 (Version 1)
Quarter: 2014Q3

REPORT INFORMATION
  Report Type: Spontaneous
  Country: US (occurrence: US)
  Receive Date: 20140813
  Receipt Date: 20140813
  Transmission Date: 20150326
  Serious: Yes (Hospitalization)
  Sender: FDA-Public Use
  Company Number: US-B.I. PHARMACEUTICALS,INC./RIDGEFIELD-2014-BI-36465BP

PATIENT
  Age: 65 Year
  Sex: Male

DRUGS (7)
  1. DIGOXIN. [Concomitant]
     Active Substance: DIGOXIN
     Dosage: 0.25 MG
     Route: 065
  2. DIABETA [Concomitant]
     Active Substance: GLYBURIDE
     Dosage: 1.25 MG
     Route: 065
  3. THORAZINE [Concomitant]
     Active Substance: CHLORPROMAZINE
     Route: 065
  4. PRADAXA [Suspect]
     Active Substance: DABIGATRAN ETEXILATE MESYLATE
     Indication: ATRIAL FIBRILLATION
     Dosage: 300 MG
     Route: 048
  5. ASPIRIN. [Concomitant]
     Active Substance: ASPIRIN
     Dosage: 81 MG
     Route: 065
  6. KEFLEX [Concomitant]
     Active Substance: CEPHALEXIN
     Dosage: 2000 MG
     Route: 065
  7. METOPROLOL [Concomitant]
     Active Substance: METOPROLOL
     Dosage: 150 MG
     Route: 065

REACTIONS (8)
  - Melaena [Unknown]
  - Oesophagitis [Unknown]
  - Cellulitis [Not Recovered/Not Resolved]
  - Gastritis [Unknown]
  - Renal failure acute [Unknown]
  - Gastric ulcer [Unknown]
  - Coagulopathy [Unknown]
  - Anaemia [Unknown]

NARRATIVE: CASE EVENT DATE: 201310
